FAERS Safety Report 4841471-6 (Version None)
Quarter: 2005Q4

REPORT INFORMATION
  Report Type: 
  Country: None (occurrence: None)
  Receive Date: 20051130
  Receipt Date: 20051122
  Transmission Date: 20060501
  Serious: Yes (Other)
  Sender: FDA-Public Use
  Company Number: GB-BOEHRINGER INGELHEIM PHARMACEUTICALS, INC.-2005-BP-20662YA

PATIENT
  Sex: Male

DRUGS (3)
  1. TAMSULOSIN HYDROCHLORIDE [Suspect]
     Route: 048
     Dates: start: 20051101, end: 20051122
  2. OXYBUTYNIN [Concomitant]
     Route: 065
     Dates: start: 20050101
  3. FINASTERIDE [Concomitant]
     Route: 065

REACTIONS (2)
  - THROAT TIGHTNESS [None]
  - WHEEZING [None]
